FAERS Safety Report 7830787-7 (Version None)
Quarter: 2011Q4

REPORT INFORMATION
  Report Type: 
  Country: None (occurrence: None)
  Receive Date: 20111021
  Receipt Date: 20111011
  Transmission Date: 20120403
  Serious: Yes (Life-Threatening, Other)
  Sender: FDA-Public Use
  Company Number: CA-GLAXOSMITHKLINE-A0945529A

PATIENT
  Age: 62 Year
  Sex: Male
  Weight: 111.4 kg

DRUGS (5)
  1. PROSCAR [Concomitant]
     Dates: end: 20080401
  2. HEART MEDICATION [Concomitant]
  3. AVODART [Suspect]
     Indication: PRODUCT USED FOR UNKNOWN INDICATION
     Dosage: .5MG PER DAY
     Route: 065
     Dates: start: 20091117
  4. PRADAXA [Concomitant]
  5. MICARDIS HCT [Concomitant]

REACTIONS (3)
  - PROSTATE CANCER [None]
  - PROSTATE CANCER METASTATIC [None]
  - PROSTATIC SPECIFIC ANTIGEN INCREASED [None]
